FAERS Safety Report 24964846 (Version 1)
Quarter: 2025Q1

REPORT INFORMATION
  Report Type: Spontaneous
  Country: CA (occurrence: CA)
  Receive Date: 20250213
  Receipt Date: 20250213
  Transmission Date: 20250409
  Serious: Yes (Life-Threatening)
  Sender: ACCORD
  Company Number: None

PATIENT
  Age: 2 Year
  Sex: Female
  Weight: 8 kg

DRUGS (21)
  1. TACROLIMUS [Suspect]
     Active Substance: TACROLIMUS
     Indication: Still^s disease
     Route: 048
  2. ACETAMINOPHEN [Concomitant]
     Active Substance: ACETAMINOPHEN
  3. ACTEMRA [Concomitant]
     Active Substance: TOCILIZUMAB
  4. AMPICILLIN [Concomitant]
     Active Substance: AMPICILLIN
  5. CEFIXIME [Concomitant]
     Active Substance: CEFIXIME
  6. CYPROHEPTADINE HYDROCHLORIDE [Concomitant]
     Active Substance: CYPROHEPTADINE HYDROCHLORIDE
  7. EPINEPHRINE [Concomitant]
     Active Substance: EPINEPHRINE
  8. FUROSEMIDE [Concomitant]
     Active Substance: FUROSEMIDE
  9. HEPARIN SODIUM [Concomitant]
     Active Substance: HEPARIN SODIUM
     Route: 042
  10. RUXOLITINIB [Concomitant]
     Active Substance: RUXOLITINIB
  11. LANSOPRAZOLE [Concomitant]
     Active Substance: LANSOPRAZOLE
  12. MELATONIN [Concomitant]
     Active Substance: MELATONIN
  13. METHYLPREDNISOLONE [Concomitant]
     Active Substance: METHYLPREDNISOLONE
  14. NYSTATIN [Concomitant]
     Active Substance: NYSTATIN
  15. PHYTONADIONE [Concomitant]
     Active Substance: PHYTONADIONE
  16. PIPERACILLIN SODIUM\TAZOBACTAM SODIUM [Concomitant]
     Active Substance: PIPERACILLIN SODIUM\TAZOBACTAM SODIUM
  17. POLYETHYLENE GLYCOL [Concomitant]
     Active Substance: POLYETHYLENE GLYCOL
  18. POTASSIUM [Concomitant]
     Active Substance: POTASSIUM
  19. PREDNISONE [Concomitant]
     Active Substance: PREDNISONE
  20. ALBUTEROL [Concomitant]
     Active Substance: ALBUTEROL
  21. SULFAMETHOXAZOLE\TRIMETHOPRIM [Concomitant]
     Active Substance: SULFAMETHOXAZOLE\TRIMETHOPRIM

REACTIONS (7)
  - Rash [Unknown]
  - Anaemia [Unknown]
  - Thrombocytopenia [Unknown]
  - Thrombotic microangiopathy [Unknown]
  - Red blood cell schistocytes present [Unknown]
  - Spinal cord compression [Unknown]
  - Reticulocytosis [Unknown]
